FAERS Safety Report 8144532-1 (Version None)
Quarter: 2012Q1

REPORT INFORMATION
  Report Type: 
  Country: None (occurrence: None)
  Receive Date: 20120217
  Receipt Date: 20120209
  Transmission Date: 20120608
  Serious: Yes (Other)
  Sender: FDA-Public Use
  Company Number: US-BRISTOL-MYERS SQUIBB COMPANY-16392102

PATIENT
  Age: 63 Year
  Sex: Female

DRUGS (6)
  1. AVALIDE [Suspect]
  2. DICYCLOMINE [Concomitant]
  3. PREDNISONE [Concomitant]
  4. DILTIAZEM [Concomitant]
  5. AMITRIPTYLINE HCL [Concomitant]
  6. EVISTA [Concomitant]

REACTIONS (1)
  - COELIAC DISEASE [None]
